FAERS Safety Report 6242376-9 (Version None)
Quarter: 2009Q2

REPORT INFORMATION
  Report Type: 
  Country: None (occurrence: None)
  Receive Date: 20090622
  Receipt Date: 20090622
  Transmission Date: 20091009
  Serious: Yes (Other)
  Sender: FDA-Public Use
  Company Number: None

PATIENT
  Sex: Female
  Weight: 141.9759 kg

DRUGS (19)
  1. DEMEROL [Suspect]
     Indication: BACK PAIN
     Dosage: 50MG Q 4 PO
     Route: 048
     Dates: start: 20030601
  2. DEMEROL [Suspect]
     Indication: HAEMATURIA
     Dosage: 50MG Q 4 PO
     Route: 048
     Dates: start: 20030601
  3. DEMEROL [Suspect]
     Indication: BACK PAIN
     Dosage: 50MG Q 4 PO
     Route: 048
     Dates: start: 20030702
  4. DEMEROL [Suspect]
     Indication: HAEMATURIA
     Dosage: 50MG Q 4 PO
     Route: 048
     Dates: start: 20030702
  5. DURAGESIC-100 [Concomitant]
  6. BENADRYL [Concomitant]
  7. HYTRIN [Concomitant]
  8. AMBIEN [Concomitant]
  9. XANAX [Concomitant]
  10. ASPIRIN [Concomitant]
  11. HYDROXYZINE [Concomitant]
  12. ZOFRAN [Concomitant]
  13. ASPIRIN [Concomitant]
  14. CLARITIN [Concomitant]
  15. PROZAC [Concomitant]
  16. HYDROCHLOROTHIAZIDE [Concomitant]
  17. GLIPIZIDE [Concomitant]
  18. COLACE [Concomitant]
  19. BECONASE [Concomitant]

REACTIONS (2)
  - DRUG INEFFECTIVE [None]
  - PAIN [None]
